FAERS Safety Report 9099748 (Version 2)
Quarter: 2013Q2

REPORT INFORMATION
  Report Type: Report from Study
  Country: DE (occurrence: DE)
  Receive Date: 20130214
  Receipt Date: 20130530
  Transmission Date: 20140414
  Serious: Yes (Hospitalization, Other)
  Sender: FDA-Public Use
  Company Number: DE-ABBOTT-13P-062-1049253-00

PATIENT
  Sex: Male

DRUGS (2)
  1. HUMIRA PEN [Suspect]
     Indication: CROHN^S DISEASE
     Route: 058
     Dates: start: 20110721, end: 20121006
  2. AZATHIOPRINE [Concomitant]
     Indication: PRODUCT USED FOR UNKNOWN INDICATION

REACTIONS (6)
  - Abdominal adhesions [Not Recovered/Not Resolved]
  - Small intestine carcinoma metastatic [Not Recovered/Not Resolved]
  - Abdominal pain [Unknown]
  - Abdominal lymphadenopathy [Unknown]
  - Neuroendocrine carcinoma [Unknown]
  - Crohn^s disease [Unknown]
